FAERS Safety Report 20206800 (Version 4)
Quarter: 2022Q1

REPORT INFORMATION
  Report Type: Report from Study
  Country: DE (occurrence: DE)
  Receive Date: 20211220
  Receipt Date: 20220111
  Transmission Date: 20220423
  Serious: Yes (Hospitalization)
  Sender: FDA-Public Use
  Company Number: DE-CELGENE-DEU-20211202651

PATIENT
  Age: 61 Year
  Sex: Male
  Weight: 78.5 kg

DRUGS (16)
  1. LENALIDOMIDE [Suspect]
     Active Substance: LENALIDOMIDE
     Indication: Plasma cell myeloma
     Dosage: 25 MILLIGRAM
     Route: 048
     Dates: start: 20210423, end: 20211103
  2. DEXAMETHASONE [Suspect]
     Active Substance: DEXAMETHASONE
     Indication: Plasma cell myeloma
     Dosage: 40 MILLIGRAM
     Route: 048
     Dates: start: 20210423, end: 20211104
  3. DEXAMETHASONE [Suspect]
     Active Substance: DEXAMETHASONE
     Route: 041
     Dates: start: 20210423, end: 20211028
  4. DEXAMETHASONE [Suspect]
     Active Substance: DEXAMETHASONE
     Dosage: 28 MILLIGRAM
     Route: 048
     Dates: start: 20210423, end: 20211028
  5. DEXAMETHASONE [Suspect]
     Active Substance: DEXAMETHASONE
     Dosage: 40 MILLIGRAM
     Route: 048
     Dates: start: 20210701, end: 20211104
  6. CARFILZOMIB [Suspect]
     Active Substance: CARFILZOMIB
     Indication: Plasma cell myeloma
     Route: 041
     Dates: start: 20210423, end: 20211029
  7. CARFILZOMIB [Suspect]
     Active Substance: CARFILZOMIB
     Dosage: 40 MILLIGRAM
     Route: 041
     Dates: start: 20210423, end: 20210512
  8. CARFILZOMIB [Suspect]
     Active Substance: CARFILZOMIB
     Dosage: 72 MILLIGRAM
     Route: 041
     Dates: start: 20210527, end: 20210625
  9. CARFILZOMIB [Suspect]
     Active Substance: CARFILZOMIB
     Route: 041
     Dates: start: 20210701, end: 20210709
  10. CARFILZOMIB [Suspect]
     Active Substance: CARFILZOMIB
     Route: 041
     Dates: start: 20210818, end: 20211001
  11. CARFILZOMIB [Suspect]
     Active Substance: CARFILZOMIB
     Route: 041
     Dates: start: 20211014, end: 20211029
  12. ELOTUZUMAB [Suspect]
     Active Substance: ELOTUZUMAB
     Indication: Plasma cell myeloma
     Route: 041
     Dates: start: 20210423, end: 20211028
  13. ELOTUZUMAB [Suspect]
     Active Substance: ELOTUZUMAB
     Dosage: 850 MILLIGRAM
     Route: 041
     Dates: start: 20210423
  14. ELOTUZUMAB [Suspect]
     Active Substance: ELOTUZUMAB
     Dosage: 830 MILLIGRAM
     Route: 041
     Dates: start: 20210503, end: 20210708
  15. ELOTUZUMAB [Suspect]
     Active Substance: ELOTUZUMAB
     Dosage: 780 MILLIGRAM
     Route: 041
     Dates: start: 20210818, end: 20210930
  16. ELOTUZUMAB [Suspect]
     Active Substance: ELOTUZUMAB
     Dosage: 800 MILLIGRAM
     Route: 041
     Dates: start: 20211014, end: 20211028

REACTIONS (1)
  - Chronic myeloid leukaemia [Unknown]

NARRATIVE: CASE EVENT DATE: 20211204
